FAERS Safety Report 9986240 (Version 2)
Quarter: 2014Q1

REPORT INFORMATION
  Report Type: Spontaneous
  Country: PR (occurrence: PR)
  Receive Date: 20140307
  Receipt Date: 20140307
  Transmission Date: 20141002
  Serious: No
  Sender: FDA-Public Use
  Company Number: PR-ABBVIE-13P-131-1084979-00

PATIENT
  Age: 42 Year
  Sex: Male
  Weight: 80.81 kg

DRUGS (11)
  1. HUMIRA [Suspect]
     Indication: RHEUMATOID ARTHRITIS
     Route: 058
     Dates: start: 201210, end: 20130503
  2. CLINORIL [Concomitant]
     Indication: RHEUMATOID ARTHRITIS
     Route: 048
  3. PREDNISONE [Concomitant]
     Indication: RHEUMATOID ARTHRITIS
     Route: 048
  4. ENALAPRIL [Concomitant]
     Indication: HYPERTENSION
     Route: 048
  5. FOLIC ACID [Concomitant]
     Indication: VITAMIN SUPPLEMENTATION
     Route: 048
  6. METHOTREXATE [Concomitant]
     Indication: RHEUMATOID ARTHRITIS
     Dosage: WEEKLY
     Route: 048
  7. WELLBUTRIN [Concomitant]
     Indication: MAJOR DEPRESSION
     Route: 048
  8. KLONOPIN [Concomitant]
     Indication: MAJOR DEPRESSION
     Route: 048
  9. RISPERDAL [Concomitant]
     Indication: MAJOR DEPRESSION
     Route: 048
  10. TEMAZEPAM [Concomitant]
     Indication: INSOMNIA
     Route: 048
  11. FLEXERIL [Concomitant]
     Indication: PAIN
     Route: 048

REACTIONS (1)
  - Nasopharyngitis [Recovered/Resolved]
